FAERS Safety Report 18228634 (Version 1)
Quarter: 2020Q3

REPORT INFORMATION
  Report Type: Spontaneous
  Country: US (occurrence: US)
  Receive Date: 20200903
  Receipt Date: 20200903
  Transmission Date: 20201103
  Serious: No
  Sender: FDA-Public Use
  Company Number: US-BECTON DICKINSON-2020BDN00023

PATIENT
  Age: 25 Year
  Sex: Female
  Weight: 97.51 kg

DRUGS (1)
  1. CHLORAPREP WITH TINT [Suspect]
     Active Substance: CHLORHEXIDINE GLUCONATE\ISOPROPYL ALCOHOL
     Dosage: UNK
     Dates: start: 20200107, end: 20200107

REACTIONS (3)
  - Product package associated injury [Recovered/Resolved]
  - Occupational exposure to product [Recovered/Resolved]
  - Wound [Recovered/Resolved]

NARRATIVE: CASE EVENT DATE: 20200107
